FAERS Safety Report 7327473-9 (Version None)
Quarter: 2011Q1

REPORT INFORMATION
  Report Type: 
  Country: None (occurrence: None)
  Receive Date: 20110303
  Receipt Date: 20110222
  Transmission Date: 20110831
  Serious: Yes (Hospitalization)
  Sender: FDA-Public Use
  Company Number: US-BIOGENIDEC-2010BI012661

PATIENT
  Age: 43 Year
  Sex: Female
  Weight: 66 kg

DRUGS (12)
  1. NEURONTIN [Concomitant]
  2. ZONEGRAN [Concomitant]
  3. POTASSIUM [Concomitant]
  4. AMBIEN [Concomitant]
  5. HYDROCHLOROTHIAZIDE [Concomitant]
  6. TYSABRI [Suspect]
     Indication: MULTIPLE SCLEROSIS
     Route: 042
     Dates: start: 20080520, end: 20100309
  7. TYSABRI [Suspect]
     Route: 042
     Dates: start: 20100610
  8. PHENERGAN [Concomitant]
  9. MECLIZINE [Concomitant]
  10. ZANAFLEX [Concomitant]
  11. ARICEPT [Concomitant]
  12. ZOCOR [Concomitant]

REACTIONS (19)
  - OESOPHAGITIS ULCERATIVE [None]
  - ABDOMINAL PAIN UPPER [None]
  - NAUSEA [None]
  - PARAESTHESIA [None]
  - HAEMATEMESIS [None]
  - HEADACHE [None]
  - MULTIPLE SCLEROSIS RELAPSE [None]
  - HAEMATOCHEZIA [None]
  - GASTRITIS [None]
  - TREMOR [None]
  - BLADDER DISORDER [None]
  - WEIGHT DECREASED [None]
  - PAIN [None]
  - GALLBLADDER DISORDER [None]
  - FAECAL INCONTINENCE [None]
  - PALPITATIONS [None]
  - CONSTIPATION [None]
  - DYSURIA [None]
  - HYPERHIDROSIS [None]
